FAERS Safety Report 11628090 (Version 1)
Quarter: 2015Q4

REPORT INFORMATION
  Report Type: Spontaneous
  Country: US (occurrence: US)
  Receive Date: 20151014
  Receipt Date: 20151014
  Transmission Date: 20160304
  Serious: No
  Sender: FDA-Public Use
  Company Number: US-ELI_LILLY_AND_COMPANY-US201510003431

PATIENT
  Sex: Female

DRUGS (1)
  1. FORTEO [Suspect]
     Active Substance: TERIPARATIDE
     Indication: SPINAL FRACTURE
     Dosage: UNK
     Dates: start: 2015

REACTIONS (9)
  - Malaise [Unknown]
  - Bone pain [Unknown]
  - Pain in extremity [Unknown]
  - Pain [Unknown]
  - Headache [Unknown]
  - Hypoaesthesia [Unknown]
  - Blood disorder [Unknown]
  - Muscle twitching [Not Recovered/Not Resolved]
  - Myalgia [Unknown]
